FAERS Safety Report 8412390-3 (Version None)
Quarter: 2012Q2

REPORT INFORMATION
  Report Type: 
  Country: None (occurrence: None)
  Receive Date: 20120605
  Receipt Date: 20120523
  Transmission Date: 20120825
  Serious: Yes (Other)
  Sender: FDA-Public Use
  Company Number: US-ELI_LILLY_AND_COMPANY-US201205009117

PATIENT
  Sex: Female

DRUGS (2)
  1. CYMBALTA [Suspect]
     Indication: HEADACHE
     Dosage: 60 MG, QD
     Dates: start: 20110501, end: 20120501
  2. MINOCYCLINE HCL [Concomitant]
     Indication: ACNE

REACTIONS (3)
  - ASPARTATE AMINOTRANSFERASE INCREASED [None]
  - OFF LABEL USE [None]
  - ALANINE AMINOTRANSFERASE INCREASED [None]
